FAERS Safety Report 8516017-1 (Version None)
Quarter: 2012Q3

REPORT INFORMATION
  Report Type: 
  Country: None (occurrence: None)
  Receive Date: 20120717
  Receipt Date: 20120716
  Transmission Date: 20120928
  Serious: Yes (Congenital Anomaly)
  Sender: FDA-Public Use
  Company Number: US-GILEAD-2012-0058033

PATIENT
  Sex: Male

DRUGS (5)
  1. LOPINAVIR/RITONAVIR [Suspect]
     Dosage: 6 DF, QD
     Route: 064
     Dates: start: 20111101, end: 20120112
  2. ZIDOVUDINE [Suspect]
     Indication: HIV INFECTION
     Dosage: 2 MG/KG, Q1HR
     Route: 064
     Dates: start: 20120611, end: 20120611
  3. ZIDOVUDINE [Suspect]
     Dosage: 1 MG/KG, Q1HR
     Route: 064
     Dates: start: 20120611, end: 20120611
  4. EMTRICITABINE/TENOFOVIR DISOPROXIL FUMARATE [Suspect]
     Indication: HIV INFECTION
     Dosage: 1 DF, QD
     Route: 064
     Dates: start: 20111101, end: 20120611
  5. LOPINAVIR/RITONAVIR [Suspect]
     Indication: HIV INFECTION
     Dosage: 4 DF, QD
     Route: 064
     Dates: start: 20120112, end: 20120611

REACTIONS (2)
  - CLEFT LIP AND PALATE [None]
  - MATERNAL DRUGS AFFECTING FOETUS [None]
